FAERS Safety Report 8643849 (Version 3)
Quarter: 2013Q4

REPORT INFORMATION
  Report Type: Spontaneous
  Country: US (occurrence: US)
  Receive Date: 20120629
  Receipt Date: 20131105
  Transmission Date: 20140711
  Serious: Yes (Life-Threatening)
  Sender: FDA-Public Use
  Company Number: US-009507513-1206USA04556

PATIENT
  Age: 67 Year
  Sex: Female

DRUGS (6)
  1. JANUVIA [Suspect]
     Indication: BLOOD GLUCOSE
     Dosage: CUTTING 100 MG TABLET IN HALF AND TAKING 0.5 TABLET BID
     Route: 048
     Dates: start: 20120612, end: 20120621
  2. LEVOTIROXINA S.O [Concomitant]
  3. SYNTHROID [Concomitant]
  4. ZOCOR [Concomitant]
     Route: 048
  5. REMERON [Concomitant]
  6. METFORMIN [Concomitant]

REACTIONS (4)
  - Blood glucose increased [Unknown]
  - Wrong technique in drug usage process [Unknown]
  - Inappropriate schedule of drug administration [Unknown]
  - Blood glucose abnormal [Unknown]
